FAERS Safety Report 5230374-3 (Version None)
Quarter: 2007Q1

REPORT INFORMATION
  Report Type: 
  Country: None (occurrence: None)
  Receive Date: 20070206
  Receipt Date: 20070125
  Transmission Date: 20070707
  Serious: Yes (Other)
  Sender: FDA-Public Use
  Company Number: JP-PFIZER INC-2007008258

PATIENT
  Age: 20 Year
  Sex: Male

DRUGS (2)
  1. GABAPEN [Suspect]
     Indication: EPILEPSY
     Dosage: DAILY DOSE:1200MG
     Route: 048
  2. CERCINE [Suspect]
     Indication: EPILEPSY
     Route: 048

REACTIONS (7)
  - ABNORMAL BEHAVIOUR [None]
  - CONVULSION [None]
  - DIZZINESS [None]
  - GAIT DISTURBANCE [None]
  - LISTLESS [None]
  - MEMORY IMPAIRMENT [None]
  - SOMNOLENCE [None]
